FAERS Safety Report 6401916-7 (Version None)
Quarter: 2009Q4

REPORT INFORMATION
  Report Type: 
  Country: None (occurrence: None)
  Receive Date: 20091015
  Receipt Date: 20091006
  Transmission Date: 20100525
  Serious: Yes (Hospitalization)
  Sender: FDA-Public Use
  Company Number: A0787548A

PATIENT
  Age: 54 Year
  Sex: Male
  Weight: 119.1 kg

DRUGS (6)
  1. AVANDIA [Suspect]
     Indication: DIABETES MELLITUS
     Dosage: 8MG PER DAY
     Route: 048
     Dates: start: 20051101, end: 20060722
  2. HYDROCHLOROTHIAZIDE [Concomitant]
     Dates: end: 20060722
  3. CRESTOR [Concomitant]
  4. METFORMIN HYDROCHLORIDE [Concomitant]
  5. PROTONIX [Concomitant]
  6. PREDNISONE [Concomitant]

REACTIONS (4)
  - CARDIAC DISORDER [None]
  - CARDIAC FAILURE CONGESTIVE [None]
  - ISCHAEMIC CARDIOMYOPATHY [None]
  - MYOCARDIAL INFARCTION [None]
